FAERS Safety Report 12997778 (Version 1)
Quarter: 2016Q4

REPORT INFORMATION
  Report Type: Spontaneous
  Country: FR (occurrence: FR)
  Receive Date: 20161205
  Receipt Date: 20161205
  Transmission Date: 20170207
  Serious: Yes (Other)
  Sender: FDA-Public Use
  Company Number: PHHY2016FR164951

PATIENT
  Age: 5 Year
  Sex: Male

DRUGS (3)
  1. IMUREL [Suspect]
     Active Substance: AZATHIOPRINE SODIUM
     Indication: PRODUCT USED FOR UNKNOWN INDICATION
     Dosage: UNK, QD
     Route: 048
     Dates: start: 20010123
  2. SOLUPRED [Suspect]
     Active Substance: PREDNISOLONE
     Indication: PRODUCT USED FOR UNKNOWN INDICATION
     Dosage: 8.5 MG, QD
     Route: 048
     Dates: start: 20000224
  3. NEORAL [Suspect]
     Active Substance: CYCLOSPORINE
     Indication: EVANS SYNDROME
     Dosage: 70 MG, QD
     Route: 065
     Dates: start: 20001226

REACTIONS (2)
  - Upper respiratory tract infection [Recovered/Resolved]
  - Immune thrombocytopenic purpura [Recovered/Resolved]

NARRATIVE: CASE EVENT DATE: 200111
